FAERS Safety Report 20866095 (Version 1)
Quarter: 2022Q2

REPORT INFORMATION
  Report Type: Spontaneous
  Country: US (occurrence: None)
  Receive Date: 20220523
  Receipt Date: 20220523
  Transmission Date: 20220721
  Serious: Yes (Hospitalization)
  Sender: FDA-Public Use
  Company Number: None

PATIENT
  Age: 29 Year
  Sex: Female

DRUGS (1)
  1. VIVITROL [Suspect]
     Active Substance: NALTREXONE
     Indication: Drug use disorder
     Dosage: FREQUENCY : MONTHLY;?
     Route: 030
     Dates: start: 20210819, end: 20210919

REACTIONS (2)
  - Staphylococcal infection [None]
  - Drug abuse [None]

NARRATIVE: CASE EVENT DATE: 20211110
